FAERS Safety Report 16243570 (Version 41)
Quarter: 2025Q2

REPORT INFORMATION
  Report Type: Spontaneous
  Country: US (occurrence: US)
  Receive Date: 20190426
  Receipt Date: 20250407
  Transmission Date: 20250716
  Serious: Yes (Hospitalization, Other)
  Sender: PFIZER
  Company Number: US-PFIZER INC-2019168642

PATIENT
  Age: 74 Year
  Sex: Female
  Weight: 73 kg

DRUGS (37)
  1. PREMARIN [Suspect]
     Active Substance: ESTROGENS, CONJUGATED
     Indication: Menopause
     Dosage: 0.3 MG, 1X/DAY
     Route: 048
     Dates: start: 1956
  2. PREMARIN [Suspect]
     Active Substance: ESTROGENS, CONJUGATED
     Indication: Cervix neoplasm
     Dosage: 1.75 MG, ONCE DAILY
     Route: 048
  3. PREMARIN [Suspect]
     Active Substance: ESTROGENS, CONJUGATED
     Indication: Hot flush
     Dates: end: 201806
  4. PREMARIN [Suspect]
     Active Substance: ESTROGENS, CONJUGATED
     Indication: Hormone replacement therapy
     Dosage: 0.3 MG, DAILY
     Route: 048
  5. PREMARIN [Suspect]
     Active Substance: ESTROGENS, CONJUGATED
     Indication: Menopausal symptoms
     Dosage: 0.3 MG, DAILY
     Dates: start: 2020
  6. PREMARIN [Suspect]
     Active Substance: ESTROGENS, CONJUGATED
     Dosage: 0.3 MG, DAILY
     Route: 048
     Dates: start: 202309
  7. PREMARIN [Suspect]
     Active Substance: ESTROGENS, CONJUGATED
     Dosage: 0.3 MG, 1X/DAY
     Route: 048
     Dates: end: 2023
  8. DIETARY SUPPLEMENT [Concomitant]
     Active Substance: DIETARY SUPPLEMENT
     Dates: start: 1990
  9. COLLAGEN [Concomitant]
     Active Substance: COLLAGEN
     Dosage: 1000 ML, DAILY
  10. COLLAGEN [Concomitant]
     Active Substance: COLLAGEN
  11. COLLAGEN [Concomitant]
     Active Substance: COLLAGEN
  12. COLLAGEN [Concomitant]
     Active Substance: COLLAGEN
     Dates: start: 1998
  13. CLONIDINE [Concomitant]
     Active Substance: CLONIDINE
     Indication: Blood disorder
     Dates: start: 1980
  14. CLONIDINE [Concomitant]
     Active Substance: CLONIDINE
     Dosage: 0.1 MG, DAILY
     Dates: start: 1998
  15. LOVASTATIN [Concomitant]
     Active Substance: LOVASTATIN
     Indication: Blood disorder
     Dates: start: 1990
  16. LOVASTATIN [Concomitant]
     Active Substance: LOVASTATIN
     Indication: Anticoagulant therapy
     Dosage: 40 MG, DAILY
     Dates: start: 1995
  17. LOVASTATIN [Concomitant]
     Active Substance: LOVASTATIN
     Indication: Cardiac disorder
     Dosage: 1 DF, 1X/DAY (ONE PILL IN THE EVENING)
  18. HYDROCHLOROTHIAZIDE [Concomitant]
     Active Substance: HYDROCHLOROTHIAZIDE
     Indication: Cardiac disorder
     Dosage: 10 MG, DAILY
     Dates: start: 1995
  19. HYDROCHLOROTHIAZIDE [Concomitant]
     Active Substance: HYDROCHLOROTHIAZIDE
  20. METOPROLOL SUCCINATE [Concomitant]
     Active Substance: METOPROLOL SUCCINATE
     Indication: Cardiac disorder
     Dosage: 100 MG, DAILY
     Dates: start: 1995
  21. METOPROLOL SUCCINATE [Concomitant]
     Active Substance: METOPROLOL SUCCINATE
  22. LISINOPRIL [Concomitant]
     Active Substance: LISINOPRIL
     Indication: Cardiac disorder
     Dosage: 40 MG, DAILY
     Dates: start: 1995
  23. LISINOPRIL [Concomitant]
     Active Substance: LISINOPRIL
  24. HYDROXYCHLOROQUINE [Concomitant]
     Active Substance: HYDROXYCHLOROQUINE
     Indication: Systemic lupus erythematosus
     Dosage: 200 MG, DAILY
  25. HYDROXYCHLOROQUINE [Concomitant]
     Active Substance: HYDROXYCHLOROQUINE
  26. VALACYCLOVIR HYDROCHLORIDE [Concomitant]
     Active Substance: VALACYCLOVIR HYDROCHLORIDE
     Dosage: 500 MG, DAILY
  27. VALACYCLOVIR HYDROCHLORIDE [Concomitant]
     Active Substance: VALACYCLOVIR HYDROCHLORIDE
  28. GLUCOSAMINE [Concomitant]
     Active Substance: GLUCOSAMINE
     Dosage: 100 MG, DAILY
     Dates: start: 1995
  29. GLUCOSAMINE [Concomitant]
     Active Substance: GLUCOSAMINE
  30. CHONDROITIN SULFATE (BOVINE)\GLUCOSAMINE HYDROCHLORIDE [Concomitant]
     Active Substance: CHONDROITIN SULFATE (BOVINE)\GLUCOSAMINE HYDROCHLORIDE
  31. VITAMIN A ACETATE [Concomitant]
     Active Substance: VITAMIN A ACETATE
  32. VITAMIN B [Concomitant]
     Active Substance: VITAMIN B
  33. CALCIUM [Concomitant]
     Active Substance: CALCIUM
  34. CHONDROITIN [Concomitant]
     Active Substance: CHONDROITIN
     Indication: Hypertension
  35. DOCUSATE [Concomitant]
     Active Substance: DOCUSATE
     Indication: Constipation
  36. NOVASTAT [Concomitant]
     Indication: Constipation
  37. TYLENOL [Concomitant]
     Active Substance: ACETAMINOPHEN
     Indication: Pain

REACTIONS (29)
  - Ovarian cyst [Recovered/Resolved]
  - Abdominal pain upper [Recovered/Resolved]
  - Sciatica [Recovered/Resolved]
  - Illness [Unknown]
  - Shoulder arthroplasty [Recovered/Resolved]
  - Fall [Recovering/Resolving]
  - Autoimmune disorder [Unknown]
  - Immunodeficiency [Unknown]
  - Balance disorder [Recovering/Resolving]
  - Mobility decreased [Unknown]
  - Hip arthroplasty [Unknown]
  - Therapeutic response unexpected [Unknown]
  - Pain [Recovered/Resolved]
  - Movement disorder [Unknown]
  - General physical health deterioration [Unknown]
  - Breast disorder [Unknown]
  - Gait disturbance [Unknown]
  - Disturbance in attention [Unknown]
  - Mental disorder [Unknown]
  - Memory impairment [Unknown]
  - Limb discomfort [Unknown]
  - Abdominal pain [Recovered/Resolved]
  - Muscle atrophy [Unknown]
  - Pain in extremity [Unknown]
  - Hair growth abnormal [Recovered/Resolved]
  - Skin laxity [Unknown]
  - Fall [Recovering/Resolving]
  - Rash [Unknown]
  - Pre-existing condition improved [Recovering/Resolving]

NARRATIVE: CASE EVENT DATE: 20100101
